FAERS Safety Report 9854880 (Version 1)
Quarter: 2014Q1

REPORT INFORMATION
  Report Type: Spontaneous
  Country: US (occurrence: US)
  Receive Date: 20140130
  Receipt Date: 20140130
  Transmission Date: 20141002
  Serious: Yes (Other)
  Sender: FDA-Public Use
  Company Number: CHPA2014US001119

PATIENT
  Age: 33 Year
  Sex: Female

DRUGS (3)
  1. TRANSDERM SCOP [Suspect]
     Indication: NAUSEA
     Dosage: 1 DF, Q72H
     Route: 062
     Dates: start: 201309, end: 20140119
  2. TRANSDERM SCOP [Suspect]
     Indication: OFF LABEL USE
  3. IBUPROFEN [Suspect]
     Indication: HEADACHE
     Dosage: UNK

REACTIONS (6)
  - Mydriasis [Not Recovered/Not Resolved]
  - Halo vision [Unknown]
  - Nausea [Not Recovered/Not Resolved]
  - Disease recurrence [Not Recovered/Not Resolved]
  - Headache [Not Recovered/Not Resolved]
  - Vision blurred [Not Recovered/Not Resolved]
